FAERS Safety Report 8473668 (Version 2)
Quarter: 2013Q1

REPORT INFORMATION
  Report Type: Spontaneous
  Country: US (occurrence: US)
  Receive Date: 20120323
  Receipt Date: 20130327
  Transmission Date: 20140127
  Serious: Yes (Other)
  Sender: FDA-Public Use
  Company Number: US-PFIZER INC-2012073692

PATIENT
  Age: 52 Year
  Sex: Female

DRUGS (22)
  1. ACCURETIC [Suspect]
     Dosage: [QUINAPRIL 10 MG]/[HYDROCHLOROTHIAZIDE 12.5 MG], DAILY
     Route: 048
  2. NORVASC [Suspect]
     Dosage: 10 MG, DAILY
     Route: 048
  3. SPIRIVA [Suspect]
     Dosage: 18 UG, DAILY
  4. BISACODYL [Concomitant]
     Dosage: 5 MG, UNK
     Route: 048
  5. KLONOPIN [Concomitant]
     Dosage: UNK
     Route: 048
  6. VITAMIN B12 [Concomitant]
     Dosage: 2500 UG, DAILY
     Route: 060
  7. DULERA [Concomitant]
     Dosage: 200-5 MCG, (INHALE 2 PUFFS INTO THE LUNGS 2 (TWO) TIMES DAILY)
  8. NEXIUM [Concomitant]
     Dosage: 10 MG, (EVERY MORNING BEFORE BREAKFAST)
     Route: 048
  9. NEXIUM [Concomitant]
     Dosage: 40 MG, EVERY MORNING BEFORE BREAKFAST
     Route: 048
  10. TRICOR [Concomitant]
     Dosage: 145 MG, DAILY
     Route: 048
  11. JANUMET [Concomitant]
     Dosage: [METFORMIN 500 MG]/[SITAGLIPTIN 50 MG], 2X/DAY WITH MEALS
     Route: 048
  12. PRAVACHOL [Concomitant]
     Dosage: 40 MG, DAILY
     Route: 048
  13. PROVENTIL INHALER [Concomitant]
     Dosage: 90 UG, 4X/DAY (INHALE 2 PUFFS INTO THE LUNGS 4 (FOUR) TIMES DAILY)
  14. PSYLLIUM [Concomitant]
     Dosage: UNK, 2X/DAY
     Route: 048
  15. SEROQUEL [Concomitant]
     Dosage: 400 MG, NIGHTLY
     Route: 048
  16. VITAMIN D3 [Concomitant]
     Dosage: 5000 IU, DAILY
     Route: 048
  17. ECOTRIN [Concomitant]
     Dosage: 81 MG, DAILY
     Route: 048
  18. BUSPAR [Concomitant]
     Dosage: 10 MG, 3X/DAY
     Route: 048
  19. CELEXA [Concomitant]
     Dosage: 40 MG, UNK
     Route: 048
  20. DALIRESP [Concomitant]
     Dosage: 500 UG, DAILY
     Route: 048
  21. CRESTOR [Concomitant]
     Dosage: 40 MG, DAILY
     Route: 048
  22. AUGMENTIN [Concomitant]
     Dosage: [AMOXICILLIN 875 MG]/[CLAVULANATE 125 MG], 2X/DAY
     Route: 048

REACTIONS (15)
  - Diabetes mellitus inadequate control [Unknown]
  - Bipolar I disorder [Unknown]
  - Chronic obstructive pulmonary disease [Unknown]
  - Essential hypertension [Unknown]
  - Constipation [Unknown]
  - Chest pain [Unknown]
  - Blood cholesterol increased [Unknown]
  - Anxiety disorder [Unknown]
  - Depression [Unknown]
  - Gastrooesophageal reflux disease [Unknown]
  - Back pain [Unknown]
  - Arthralgia [Unknown]
  - Vitamin B12 deficiency [Unknown]
  - Vitamin D deficiency [Unknown]
  - Pain in extremity [Unknown]
